FAERS Safety Report 4896538-3 (Version None)
Quarter: 2006Q1

REPORT INFORMATION
  Report Type: 
  Country: None (occurrence: None)
  Receive Date: 20060131
  Receipt Date: 20060119
  Transmission Date: 20060701
  Serious: Yes (Hospitalization)
  Sender: FDA-Public Use
  Company Number: FR-GLAXOSMITHKLINE-B0408307A

PATIENT
  Age: 91 Year
  Sex: Female

DRUGS (11)
  1. AUGMENTIN '125' [Suspect]
     Dosage: 1G THREE TIMES PER DAY
     Route: 042
     Dates: start: 20050127, end: 20050128
  2. ROCEPHIN [Suspect]
     Dosage: 1G PER DAY
     Route: 042
     Dates: start: 20050128, end: 20050129
  3. DEROXAT [Concomitant]
     Dosage: 40MG PER DAY
     Route: 048
  4. KARDEGIC [Concomitant]
     Dosage: 75MG PER DAY
     Route: 048
  5. ARICEPT [Concomitant]
     Route: 048
  6. ATHYMIL [Concomitant]
     Dosage: 30MG PER DAY
     Route: 048
  7. SERESTA 10 [Concomitant]
     Route: 065
  8. FORLAX [Concomitant]
     Route: 065
  9. HALDOL [Concomitant]
     Route: 065
  10. STILNOX [Concomitant]
     Route: 065
  11. OXYGEN THERAPY [Concomitant]
     Route: 055
     Dates: start: 20050126

REACTIONS (5)
  - ACUTE GENERALISED EXANTHEMATOUS PUSTULOSIS [None]
  - DRUG HYPERSENSITIVITY [None]
  - ERYTHEMA [None]
  - RASH SCARLATINIFORM [None]
  - SKIN DISORDER [None]
